FAERS Safety Report 6741383-7 (Version None)
Quarter: 2010Q2

REPORT INFORMATION
  Report Type: 
  Country: None (occurrence: None)
  Receive Date: 20100526
  Receipt Date: 20100519
  Transmission Date: 20101027
  Serious: Yes (Death)
  Sender: FDA-Public Use
  Company Number: FI-BRISTOL-MYERS SQUIBB COMPANY-14845499

PATIENT
  Age: 48 Year
  Sex: Male

DRUGS (2)
  1. ORENCIA [Suspect]
  2. ALCOHOL [Concomitant]

REACTIONS (2)
  - CARDIAC DISORDER [None]
  - HYPERTENSION [None]
